FAERS Safety Report 9791945 (Version 7)
Quarter: 2017Q1

REPORT INFORMATION
  Report Type: Report from Study
  Country: US (occurrence: US)
  Receive Date: 20140102
  Receipt Date: 20170303
  Transmission Date: 20170429
  Serious: Yes (Hospitalization, Disabling, Other)
  Sender: FDA-Public Use
  Company Number: US-SA-2013SA134803

PATIENT
  Age: 68 Year
  Sex: Female
  Weight: 86.18 kg

DRUGS (26)
  1. AUBAGIO [Suspect]
     Active Substance: TERIFLUNOMIDE
     Indication: MULTIPLE SCLEROSIS
     Route: 048
     Dates: start: 20131209
  2. CRANBERRY EXTRACT [Concomitant]
     Active Substance: CRANBERRY JUICE
  3. TRAMADOL HYDROCHLORIDE. [Concomitant]
     Active Substance: TRAMADOL HYDROCHLORIDE
     Indication: PAIN
     Dosage: STRENGTH: 37.5/325 MG, TAKE 1 TAB BY MOTH EVEY SIX HOURS AS NEEDED
  4. PRILOSEC [Concomitant]
     Active Substance: OMEPRAZOLE MAGNESIUM
  5. MAXAIR [Concomitant]
     Active Substance: PIRBUTEROL ACETATE
     Dosage: FORM: AUTOHALER, 2 PUFFS EVERY 4 TO 6 HRS(USES BEFORE EXERCISE ONLY)
  6. SULFASALAZINE. [Concomitant]
     Active Substance: SULFASALAZINE
     Indication: CROHN^S DISEASE
     Dosage: STRENGTH: 500 MG
  7. CLINDAMYCIN PHOSPHATE. [Concomitant]
     Active Substance: CLINDAMYCIN PHOSPHATE
     Route: 061
  8. PROAIR HFA [Concomitant]
     Active Substance: ALBUTEROL SULFATE
     Dosage: INHALATIONAL AEROSOL
  9. ANTIHISTAMINES [Concomitant]
     Active Substance: ANTIHISTAMINES NOS
     Dosage: 0.15% TWO SPRAYS IN EACH NOSTRIL 2X DAY (RARELY USE)
  10. SINGULAIR [Concomitant]
     Active Substance: MONTELUKAST SODIUM
  11. TRYPSIN [Concomitant]
     Active Substance: TRYPSIN
  12. AUBAGIO [Suspect]
     Active Substance: TERIFLUNOMIDE
     Indication: MULTIPLE SCLEROSIS
     Route: 048
     Dates: start: 20131209
  13. PROPRANOLOL HYDROCHLORIDE. [Concomitant]
     Active Substance: PROPRANOLOL HYDROCHLORIDE
  14. ALENDRONATE SODIUM. [Concomitant]
     Active Substance: ALENDRONATE SODIUM
  15. DEXAMETHASONE. [Concomitant]
     Active Substance: DEXAMETHASONE
     Route: 061
  16. ALENDRONATE SODIUM. [Concomitant]
     Active Substance: ALENDRONATE SODIUM
     Indication: BONE LOSS
  17. VITAMIN D [Concomitant]
     Active Substance: CHOLECALCIFEROL
  18. ZOCOR [Concomitant]
     Active Substance: SIMVASTATIN
  19. PROVIGIL [Concomitant]
     Active Substance: MODAFINIL
     Dosage: TAKEN AS NEEDED UP TO TWICE A DAY
  20. VENLAFAXINE HYDROCHLORIDE. [Concomitant]
     Active Substance: VENLAFAXINE HYDROCHLORIDE
     Dosage: 150MG ONCE A DAY-PM OR 75MG 2X^S A DAY
  21. BUDESONIDE. [Concomitant]
     Active Substance: BUDESONIDE
     Dosage: FORM: POWDER/INH
  22. FASLODEX [Concomitant]
     Active Substance: FULVESTRANT
  23. DILTIAZEM. [Concomitant]
     Active Substance: DILTIAZEM
  24. CARBIDOPA/LEVODOPA [Concomitant]
     Dosage: 25/100 TB MYLAN TAKE ONE TABLET 3X^S A DAY
  25. OMEPRAZOLE. [Concomitant]
     Active Substance: OMEPRAZOLE
  26. FOLIC ACID. [Concomitant]
     Active Substance: FOLIC ACID

REACTIONS (6)
  - Feeling abnormal [Unknown]
  - Fall [Unknown]
  - Ankle fracture [Recovered/Resolved]
  - Neoplasm malignant [Unknown]
  - Mobility decreased [Not Recovered/Not Resolved]
  - Mental impairment [Not Recovered/Not Resolved]

NARRATIVE: CASE EVENT DATE: 20131217
